FAERS Safety Report 13508636 (Version 4)
Quarter: 2017Q2

REPORT INFORMATION
  Report Type: Report from Study
  Country: CA (occurrence: CA)
  Receive Date: 20170503
  Receipt Date: 20170616
  Transmission Date: 20170830
  Serious: Yes (Other)
  Sender: FDA-Public Use
  Company Number: CA-GLAXOSMITHKLINE-CA2017GSK062326

PATIENT
  Sex: Male

DRUGS (2)
  1. MEPOLIZUMAB [Suspect]
     Active Substance: MEPOLIZUMAB
     Dosage: 100 MG, Z
     Route: 042
     Dates: start: 20170525
  2. MEPOLIZUMAB [Suspect]
     Active Substance: MEPOLIZUMAB
     Indication: ASTHMA
     Dosage: 100 MG, Z
     Route: 042
     Dates: start: 20170331

REACTIONS (11)
  - Blood pressure increased [Not Recovered/Not Resolved]
  - Psoriasis [Unknown]
  - Headache [Unknown]
  - Drug dose omission [Unknown]
  - Lung infection [Not Recovered/Not Resolved]
  - Rash pustular [Not Recovered/Not Resolved]
  - Rosacea [Unknown]
  - Abdominal pain upper [Unknown]
  - Dizziness [Unknown]
  - Acne pustular [Unknown]
  - Dry skin [Unknown]

NARRATIVE: CASE EVENT DATE: 2017
